FAERS Safety Report 10884382 (Version 1)
Quarter: 2015Q1

REPORT INFORMATION
  Report Type: Spontaneous
  Country: US (occurrence: US)
  Receive Date: 20150304
  Receipt Date: 20150304
  Transmission Date: 20150721
  Serious: Yes (Hospitalization, Other)
  Sender: FDA-Public Use
  Company Number: US-AMGEN-USASP2015019987

PATIENT
  Age: 51 Year
  Sex: Male

DRUGS (1)
  1. ENBREL [Suspect]
     Active Substance: ETANERCEPT
     Indication: ANKYLOSING SPONDYLITIS
     Dosage: 50 MG, QWK
     Route: 065
     Dates: start: 20030101

REACTIONS (7)
  - Injection site pain [Not Recovered/Not Resolved]
  - Retinal detachment [Recovered/Resolved]
  - Ulcer haemorrhage [Recovered/Resolved]
  - Cervical vertebral fracture [Recovered/Resolved]
  - Accident at work [Recovered/Resolved]
  - Lower limb fracture [Recovered/Resolved]
  - Compression fracture [Recovered/Resolved]

NARRATIVE: CASE EVENT DATE: 2004
